FAERS Safety Report 9800964 (Version 2)
Quarter: 2014Q1

REPORT INFORMATION
  Report Type: Spontaneous
  Country: JP (occurrence: JP)
  Receive Date: 20140107
  Receipt Date: 20140107
  Transmission Date: 20141002
  Serious: Yes (Hospitalization)
  Sender: FDA-Public Use
  Company Number: JP-ASTELLAS-2013JP013601

PATIENT
  Age: 61 Year
  Sex: Female
  Weight: 58 kg

DRUGS (10)
  1. PROGRAF [Suspect]
     Indication: LIVER TRANSPLANT
     Dosage: 0.75 MG, BID
     Route: 048
     Dates: start: 1999, end: 20130628
  2. PROGRAF [Interacting]
     Dosage: 0.65 MG, BID
     Route: 048
     Dates: start: 20130629, end: 20130705
  3. PROGRAF [Interacting]
     Dosage: 0.55 MG, BID
     Route: 048
     Dates: start: 20130706, end: 20130712
  4. PROGRAF [Interacting]
     Dosage: 0.5 MG, BID
     Route: 048
     Dates: start: 20130713
  5. PLETAAL [Interacting]
     Indication: CEREBRAL INFARCTION
     Dosage: 100 MG, BID
     Route: 048
     Dates: start: 20130408
  6. MEILAX [Interacting]
     Indication: DIZZINESS
     Dosage: 1 MG, UID/QD
     Route: 048
     Dates: start: 20130502
  7. CRESTOR [Interacting]
     Indication: DYSLIPIDAEMIA
     Dosage: 2.5 MG, UID/QD
     Route: 048
     Dates: start: 20130413
  8. TERNELIN [Interacting]
     Indication: TENSION HEADACHE
     Dosage: 1 MG, TID
     Route: 048
     Dates: start: 20130415
  9. GASTER [Concomitant]
     Indication: GASTRITIS
     Dosage: 20 MG, BID
     Route: 048
  10. GOREI-SAN [Concomitant]
     Indication: TENSION HEADACHE
     Dosage: 2.5 MG, TID
     Route: 048
     Dates: start: 20130424

REACTIONS (5)
  - Drug interaction [Recovering/Resolving]
  - Drug interaction [Recovering/Resolving]
  - Drug interaction [Recovering/Resolving]
  - Drug interaction [Recovering/Resolving]
  - Hyperglycaemia [Recovering/Resolving]
